FAERS Safety Report 25117309 (Version 2)
Quarter: 2025Q1

REPORT INFORMATION
  Report Type: Spontaneous
  Country: US (occurrence: US)
  Receive Date: 20250325
  Receipt Date: 20250328
  Transmission Date: 20250409
  Serious: Yes (Disabling)
  Sender: RECORDATI
  Company Number: US-ORPHANEU-2024007362

PATIENT
  Sex: Male

DRUGS (1)
  1. SYLVANT [Suspect]
     Active Substance: SILTUXIMAB
     Indication: Castleman^s disease
     Dosage: Q3W
     Route: 042
     Dates: start: 202408

REACTIONS (11)
  - Lymphadenopathy [Unknown]
  - Gait disturbance [Unknown]
  - Localised infection [Unknown]
  - Oedema peripheral [Unknown]
  - Depression [Unknown]
  - Paraesthesia [Unknown]
  - Hypohidrosis [Unknown]
  - Joint swelling [Unknown]
  - Arthralgia [Unknown]
  - Fluid retention [Unknown]
  - Rash [Not Recovered/Not Resolved]

NARRATIVE: CASE EVENT DATE: 20240101
